FAERS Safety Report 13485627 (Version 2)
Quarter: 2017Q2

REPORT INFORMATION
  Report Type: Spontaneous
  Country: US (occurrence: US)
  Receive Date: 20170425
  Receipt Date: 20170602
  Transmission Date: 20170830
  Serious: No
  Sender: FDA-Public Use
  Company Number: US-PFIZER INC-2017177420

PATIENT
  Age: 70 Year
  Sex: Female

DRUGS (1)
  1. XELJANZ [Suspect]
     Active Substance: TOFACITINIB CITRATE
     Indication: RHEUMATOID ARTHRITIS
     Dosage: 5 MG, 2X/DAY (BID)
     Route: 048
     Dates: start: 20170313, end: 20170323

REACTIONS (1)
  - Tongue disorder [Recovered/Resolved]

NARRATIVE: CASE EVENT DATE: 20170323
